FAERS Safety Report 16690975 (Version 6)
Quarter: 2020Q4

REPORT INFORMATION
  Report Type: Spontaneous
  Country: US (occurrence: US)
  Receive Date: 20190812
  Receipt Date: 20201112
  Transmission Date: 20210113
  Serious: Yes (Hospitalization, Other)
  Sender: FDA-Public Use
  Company Number: US-ASTRAZENECA-2019SF12626

PATIENT
  Age: 578 Month
  Sex: Male
  Weight: 122.5 kg

DRUGS (72)
  1. LOVENOX [Concomitant]
     Active Substance: ENOXAPARIN SODIUM
  2. SUBLIMAZE [Concomitant]
     Active Substance: FENTANYL CITRATE
     Dates: start: 20180419
  3. KENALOG [Concomitant]
     Active Substance: TRIAMCINOLONE ACETONIDE
     Dates: start: 20180419
  4. NICOTINE. [Concomitant]
     Active Substance: NICOTINE
  5. VICTOZA [Concomitant]
     Active Substance: LIRAGLUTIDE
     Dates: start: 20200114
  6. LOPERAMIDE [Concomitant]
     Active Substance: LOPERAMIDE
     Dates: start: 20190430
  7. ASPIRIN. [Concomitant]
     Active Substance: ASPIRIN
     Dates: start: 20190226
  8. ALOGLIPTIN. [Concomitant]
     Active Substance: ALOGLIPTIN
  9. COLACE [Concomitant]
     Active Substance: DOCUSATE SODIUM
     Route: 065
     Dates: start: 20160405
  10. LATEX [Concomitant]
     Active Substance: NATURAL LATEX RUBBER
  11. FARXIGA [Suspect]
     Active Substance: DAPAGLIFLOZIN PROPANEDIOL
     Indication: TYPE 2 DIABETES MELLITUS
     Route: 048
     Dates: start: 2016
  12. LEVEMIR [Concomitant]
     Active Substance: INSULIN DETEMIR
  13. LIPITOR [Concomitant]
     Active Substance: ATORVASTATIN CALCIUM
  14. ZESTRIL [Concomitant]
     Active Substance: LISINOPRIL
  15. MORPHIN [Concomitant]
     Active Substance: MORPHINE
     Dates: start: 20180419
  16. ISOVUE [Concomitant]
     Active Substance: IOPAMIDOL
     Dates: start: 20180419
  17. MAGNESIUM CITRATE. [Concomitant]
     Active Substance: MAGNESIUM CITRATE
  18. FLEXERIL [Concomitant]
     Active Substance: CYCLOBENZAPRINE HYDROCHLORIDE
     Route: 065
     Dates: start: 20151201
  19. ELAVIL [Concomitant]
     Active Substance: AMITRIPTYLINE HYDROCHLORIDE
     Route: 065
     Dates: start: 20160405
  20. FARXIGA [Suspect]
     Active Substance: DAPAGLIFLOZIN PROPANEDIOL
     Indication: TYPE 2 DIABETES MELLITUS
     Dosage: 10.0MG UNKNOWN
     Route: 048
     Dates: start: 20190531
  21. DILAUDID [Concomitant]
     Active Substance: HYDROMORPHONE HYDROCHLORIDE
  22. BENTYL [Concomitant]
     Active Substance: DICYCLOMINE HYDROCHLORIDE
  23. MOBIC [Concomitant]
     Active Substance: MELOXICAM
  24. HYDROCODONE BITARTRATE AND ACETAMINOPHEN [Concomitant]
     Active Substance: ACETAMINOPHEN\HYDROCODONE BITARTRATE
     Dates: start: 20190916
  25. LANTUS [Concomitant]
     Active Substance: INSULIN GLARGINE
     Dates: start: 20190226
  26. ULTRAM [Concomitant]
     Active Substance: TRAMADOL HYDROCHLORIDE
     Route: 065
     Dates: start: 20160111
  27. LABETALOL [Concomitant]
     Active Substance: LABETALOL\LABETALOL HYDROCHLORIDE
     Dates: start: 20180419
  28. VERSED [Concomitant]
     Active Substance: MIDAZOLAM HYDROCHLORIDE
     Dates: start: 20180419
  29. CIPROFLOXACIN. [Concomitant]
     Active Substance: CIPROFLOXACIN
     Dates: start: 20190430
  30. METOPROLOL TARTRATE. [Concomitant]
     Active Substance: METOPROLOL TARTRATE
  31. COLLAGENASE SANTYL [Concomitant]
     Active Substance: COLLAGENASE CLOSTRIDIUM HISTOLYTICUM
     Route: 065
     Dates: start: 20170822
  32. FARXIGA [Suspect]
     Active Substance: DAPAGLIFLOZIN PROPANEDIOL
     Indication: TYPE 2 DIABETES MELLITUS
     Dosage: 10.0MG UNKNOWN
     Route: 048
     Dates: start: 20190226
  33. ZOFRAN [Concomitant]
     Active Substance: ONDANSETRON HYDROCHLORIDE
  34. INSULIN PEN [Concomitant]
     Active Substance: INSULIN NOS
     Dates: start: 20200317
  35. VASCEPA [Concomitant]
     Active Substance: ICOSAPENT ETHYL
     Dates: start: 20190906
  36. OMEPRAZOLE. [Concomitant]
     Active Substance: OMEPRAZOLE
  37. ALOGLIPTIN-PIOGLITAZONE [Concomitant]
     Route: 065
     Dates: start: 20160216
  38. BETADINE [Concomitant]
     Active Substance: POVIDONE-IODINE
  39. LYRICA [Concomitant]
     Active Substance: PREGABALIN
     Dates: start: 20190531
  40. NOVOLOG [Concomitant]
     Active Substance: INSULIN ASPART
     Dates: start: 20200114
  41. READI-CAT [Concomitant]
     Active Substance: BARIUM SULFATE
  42. BELSOMRA [Concomitant]
     Active Substance: SUVOREXANT
     Dates: start: 20200422
  43. ALBUTEROL. [Concomitant]
     Active Substance: ALBUTEROL
     Dates: start: 20200317
  44. PREDNISONE. [Concomitant]
     Active Substance: PREDNISONE
     Dates: start: 20190430
  45. TRESIBA [Concomitant]
     Active Substance: INSULIN DEGLUDEC
  46. ERYTHROMYCIN. [Concomitant]
     Active Substance: ERYTHROMYCIN
  47. MECLIZINE [Concomitant]
     Active Substance: MECLIZINE HYDROCHLORIDE
  48. VANCOMYCIN [Concomitant]
     Active Substance: VANCOMYCIN
  49. VALIUM [Concomitant]
     Active Substance: DIAZEPAM
  50. VITAMIN D3 [Concomitant]
     Active Substance: CHOLECALCIFEROL
     Route: 065
     Dates: start: 20151201
  51. FARXIGA [Suspect]
     Active Substance: DAPAGLIFLOZIN PROPANEDIOL
     Indication: TYPE 2 DIABETES MELLITUS
     Dosage: 10.0MG UNKNOWN
     Route: 048
     Dates: start: 20200114
  52. CYMBALTA [Concomitant]
     Active Substance: DULOXETINE HYDROCHLORIDE
  53. REGLAN [Concomitant]
     Active Substance: METOCLOPRAMIDE HYDROCHLORIDE
     Dates: start: 20180419
  54. MARCAINE [Concomitant]
     Active Substance: BUPIVACAINE HYDROCHLORIDE
     Dates: start: 20180419
  55. OMEGA 3 [Concomitant]
     Active Substance: OMEGA-3 FATTY ACIDS
  56. NAUZENE [Concomitant]
  57. NALOXONE [Concomitant]
     Active Substance: NALOXONE
  58. DRISDOL [Concomitant]
     Active Substance: ERGOCALCIFEROL
     Route: 065
     Dates: start: 20170822
  59. BETADINE [Concomitant]
     Active Substance: POVIDONE-IODINE
  60. NEURONTIN [Concomitant]
     Active Substance: GABAPENTIN
  61. PEPCID [Concomitant]
     Active Substance: FAMOTIDINE
  62. PROTONIX [Concomitant]
     Active Substance: PANTOPRAZOLE SODIUM
  63. COZAAR [Concomitant]
     Active Substance: LOSARTAN POTASSIUM
  64. BUSPIRONE [Concomitant]
     Active Substance: BUSPIRONE HYDROCHLORIDE
     Dates: start: 20200422
  65. BACLOFEN. [Concomitant]
     Active Substance: BACLOFEN
     Dates: start: 20191219
  66. SPIRIVA [Concomitant]
     Active Substance: TIOTROPIUM BROMIDE MONOHYDRATE
     Dates: start: 20190906
  67. ROBAXIN [Concomitant]
     Active Substance: METHOCARBAMOL
  68. SENNOSIDES. [Concomitant]
     Active Substance: SENNOSIDES
  69. GLUCAGON. [Concomitant]
     Active Substance: GLUCAGON
  70. ACETAMINOPHEN-CODEINE [Concomitant]
     Active Substance: ACETAMINOPHEN\CODEINE PHOSPHATE
  71. TYLENOL [Concomitant]
     Active Substance: ACETAMINOPHEN
  72. ZANAFLEX [Concomitant]
     Active Substance: TIZANIDINE HYDROCHLORIDE
     Route: 065
     Dates: start: 20151124

REACTIONS (9)
  - Urinary tract infection [Unknown]
  - Cellulitis [Unknown]
  - Sepsis [Unknown]
  - Renal injury [Unknown]
  - Acute kidney injury [Unknown]
  - Renal tubular necrosis [Unknown]
  - Fournier^s gangrene [Unknown]
  - Necrotising fasciitis [Unknown]
  - Leukocytosis [Unknown]

NARRATIVE: CASE EVENT DATE: 201707
